FAERS Safety Report 6342105-4 (Version None)
Quarter: 2009Q3

REPORT INFORMATION
  Report Type: 
  Country: None (occurrence: None)
  Receive Date: 20090903
  Receipt Date: 20090903
  Transmission Date: 20100115
  Serious: No
  Sender: FDA-Public Use
  Company Number: None

PATIENT
  Age: 69 Year
  Sex: Male

DRUGS (1)
  1. CETUXIMAB [Suspect]
     Indication: CHEMOTHERAPY
     Dosage: 824 MG ONCE IV
     Route: 042
     Dates: start: 20090812, end: 20090812

REACTIONS (7)
  - ANAPHYLACTIC REACTION [None]
  - COUGH [None]
  - ERYTHEMA [None]
  - FEELING HOT [None]
  - INFUSION RELATED REACTION [None]
  - RASH MACULAR [None]
  - URTICARIA [None]
